FAERS Safety Report 6501361-X (Version None)
Quarter: 2009Q4

REPORT INFORMATION
  Report Type: 
  Country: None (occurrence: None)
  Receive Date: 20091216
  Receipt Date: 20091209
  Transmission Date: 20100525
  Serious: Yes (Death)
  Sender: FDA-Public Use
  Company Number: AT-ELI_LILLY_AND_COMPANY-AT200912002155

PATIENT

DRUGS (2)
  1. GEMCITABINE HCL [Suspect]
     Indication: TRANSITIONAL CELL CARCINOMA
     Dosage: 1000 MG/M2, OTHER (ON DAYS ONE AND EIGHT EVRY THREE WEEKS)
     Route: 042
  2. CARBOPLATIN [Concomitant]
     Indication: TRANSITIONAL CELL CARCINOMA
     Dosage: UNK, OTHER (ON DAY ONE) EVERY THREE WEEKS
     Route: 042

REACTIONS (2)
  - HAEMORRHAGE [None]
  - THROMBOCYTOPENIA [None]
